FAERS Safety Report 4313132-3 (Version None)
Quarter: 2004Q1

REPORT INFORMATION
  Report Type: 
  Country: None (occurrence: None)
  Receive Date: 20040304
  Receipt Date: 20040220
  Transmission Date: 20041129
  Serious: Yes (Hospitalization, Other)
  Sender: FDA-Public Use
  Company Number: FR_040203595

PATIENT
  Age: 49 Year
  Sex: Female

DRUGS (2)
  1. GEMZAR [Suspect]
     Indication: BREAST CANCER METASTATIC
     Dosage: 2500 MG/M2/OTHER
     Route: 050
     Dates: start: 20030101
  2. TAXOL [Suspect]
     Indication: BREAST CANCER METASTATIC
     Dosage: 240 MG/M2/OTHER
     Route: 050
     Dates: start: 20030101

REACTIONS (2)
  - ANAEMIA [None]
  - MENINGITIS BACTERIAL [None]
